FAERS Safety Report 22027058 (Version 1)
Quarter: 2023Q1

REPORT INFORMATION
  Report Type: Spontaneous
  Country: TW (occurrence: TW)
  Receive Date: 20230223
  Receipt Date: 20230223
  Transmission Date: 20230417
  Serious: Yes (Other)
  Sender: FDA-Public Use
  Company Number: TW-Accord-301182

PATIENT
  Age: 24 Year
  Sex: Female

DRUGS (14)
  1. IRINOTECAN [Suspect]
     Active Substance: IRINOTECAN
     Indication: Colon cancer stage IV
     Dosage: CUMULATIVE DOSE: 5 CYCLICAL, OVER 2 HOURS ON DAY 1
     Route: 042
  2. PALONOSETRON [Concomitant]
     Active Substance: PALONOSETRON
     Indication: Chemotherapy side effect prophylaxis
     Route: 042
  3. BEVACIZUMAB [Concomitant]
     Active Substance: BEVACIZUMAB
     Indication: Colon cancer stage IV
     Dosage: OVER 2 HOURS ON DAY 1
     Route: 042
  4. FLUOROURACIL [Concomitant]
     Active Substance: FLUOROURACIL
     Indication: K-ras gene mutation
     Dosage: 1200 MG/M2 AS A CONTINUOUS IV INFUSION OVER 23 HOURS ON DAY 1 AND DAY 2 CYCLED EVERY 14 DAYS
     Route: 042
  5. DIPHENHYDRAMINE [Concomitant]
     Active Substance: DIPHENHYDRAMINE
     Indication: Premedication
     Route: 042
  6. LEUCOVORIN [Concomitant]
     Active Substance: LEUCOVORIN
     Indication: K-ras gene mutation
     Dosage: 200 MG/M2 IV OVER 2 HOURS ON DAY 1, AND DAY 2
     Route: 042
  7. DEXAMETHASONE [Concomitant]
     Active Substance: DEXAMETHASONE
     Indication: Chemotherapy side effect prophylaxis
     Route: 042
  8. ATROPINE [Concomitant]
     Active Substance: ATROPINE
     Indication: Chemotherapy side effect prophylaxis
     Route: 042
  9. BUTYLSCOPOLAMINE BROMIDE [Concomitant]
     Active Substance: BUTYLSCOPOLAMINE BROMIDE
     Indication: Abdominal pain upper
  10. APREPITANT [Concomitant]
     Active Substance: APREPITANT
     Indication: Abdominal pain upper
  11. IRINOTECAN [Suspect]
     Active Substance: IRINOTECAN
     Indication: K-ras gene mutation
     Dosage: CUMULATIVE DOSE: 5 CYCLICAL, OVER 2 HOURS ON DAY 1
     Route: 042
  12. BEVACIZUMAB [Concomitant]
     Active Substance: BEVACIZUMAB
     Indication: K-ras gene mutation
     Dosage: OVER 2 HOURS ON DAY 1
     Route: 042
  13. FLUOROURACIL [Concomitant]
     Active Substance: FLUOROURACIL
     Indication: Colon cancer stage IV
     Dosage: 1200 MG/M2 AS A CONTINUOUS IV INFUSION OVER 23 HOURS ON DAY 1 AND DAY 2 CYCLED EVERY 14 DAYS
     Route: 042
  14. LEUCOVORIN [Concomitant]
     Active Substance: LEUCOVORIN
     Indication: Colon cancer
     Dosage: 200 MG/M2 IV OVER 2 HOURS ON DAY 1, AND DAY 2
     Route: 042

REACTIONS (2)
  - Muscle twitching [Recovered/Resolved]
  - Gastric ulcer [Recovering/Resolving]
